FAERS Safety Report 5787305-7 (Version None)
Quarter: 2008Q2

REPORT INFORMATION
  Report Type: 
  Country: None (occurrence: None)
  Receive Date: 20080625
  Receipt Date: 20071010
  Transmission Date: 20081010
  Serious: No
  Sender: FDA-Public Use
  Company Number: US-ASTRAZENECA-2007UW19756

PATIENT
  Age: 81 Year
  Sex: Female
  Weight: 48.5 kg

DRUGS (13)
  1. PULMICORT FLEXHALER [Suspect]
     Indication: CHRONIC OBSTRUCTIVE PULMONARY DISEASE
     Route: 055
     Dates: start: 20070627
  2. XOPENEX [Concomitant]
  3. ALBUTEROL [Concomitant]
     Dosage: 2 PUFFS Q 4HOURS
     Route: 055
  4. PREDNISONE [Concomitant]
  5. ATIVAN [Concomitant]
  6. LASIX [Concomitant]
  7. POTASSIUM CHLORIDE [Concomitant]
  8. ASPIRIN [Concomitant]
  9. PRAVASTATIN [Concomitant]
  10. VERELAN [Concomitant]
  11. PEPCID [Concomitant]
  12. VITAMINS [Concomitant]
  13. FLONASE [Concomitant]

REACTIONS (1)
  - DYSPNOEA [None]
